FAERS Safety Report 7716943-7 (Version None)
Quarter: 2011Q3

REPORT INFORMATION
  Report Type: 
  Country: None (occurrence: None)
  Receive Date: 20110829
  Receipt Date: 20110818
  Transmission Date: 20111222
  Serious: Yes (Hospitalization, Other)
  Sender: FDA-Public Use
  Company Number: US-ASTRAZENECA-2010SE19114

PATIENT
  Age: 83 Year
  Sex: Female
  Weight: 81.2 kg

DRUGS (15)
  1. NEXIUM [Suspect]
     Indication: GASTROOESOPHAGEAL REFLUX DISEASE
     Route: 048
     Dates: start: 20080101, end: 20100101
  2. VITAMIN SUPPLEMENTS/CA [Concomitant]
     Route: 065
  3. UNKNOWN HEART MEDICINE [Concomitant]
     Route: 065
  4. CRESTOR [Suspect]
     Route: 048
     Dates: start: 20110808
  5. MINDOR [Concomitant]
  6. NAPROSYN [Concomitant]
     Route: 065
  7. ZOCOR [Concomitant]
     Route: 065
  8. ASPIRIN [Concomitant]
     Route: 065
  9. IMDUR [Concomitant]
  10. NEXIUM [Suspect]
     Route: 048
     Dates: start: 20100101
  11. LUTEIN [Concomitant]
     Route: 065
  12. NEXIUM [Suspect]
     Route: 048
     Dates: start: 20100101
  13. AREDS SUPPLIMENTS FOR EYE [Concomitant]
     Route: 065
  14. TENORMIN [Concomitant]
     Route: 065
  15. NORVASC [Concomitant]

REACTIONS (8)
  - MACULAR DEGENERATION [None]
  - OESOPHAGEAL SPASM [None]
  - ILL-DEFINED DISORDER [None]
  - FLATULENCE [None]
  - GASTROENTERITIS [None]
  - ABDOMINAL DISTENSION [None]
  - DRUG INEFFECTIVE [None]
  - MYALGIA [None]
